FAERS Safety Report 6804148-3 (Version None)
Quarter: 2010Q2

REPORT INFORMATION
  Report Type: 
  Country: None (occurrence: None)
  Receive Date: 20100628
  Receipt Date: 20071113
  Transmission Date: 20101027
  Serious: No
  Sender: FDA-Public Use
  Company Number: US-PFIZER INC-2006038797

PATIENT
  Sex: Male
  Weight: 60.33 kg

DRUGS (2)
  1. XALATAN [Suspect]
     Indication: BORDERLINE GLAUCOMA
     Route: 047
     Dates: start: 20030806
  2. THYROID HORMONES [Concomitant]

REACTIONS (2)
  - NOCTURIA [None]
  - SLEEP DISORDER [None]
